FAERS Safety Report 15248036 (Version 1)
Quarter: 2018Q3

REPORT INFORMATION
  Report Type: Spontaneous
  Country: JP (occurrence: JP)
  Receive Date: 20180807
  Receipt Date: 20180807
  Transmission Date: 20181010
  Serious: Yes (Hospitalization, Other)
  Sender: FDA-Public Use
  Company Number: JP-SUN PHARMACEUTICAL INDUSTRIES LTD-2018RR-180738

PATIENT
  Age: 73 Year
  Sex: Male
  Weight: 50 kg

DRUGS (7)
  1. BETAMETHASONE. [Suspect]
     Active Substance: BETAMETHASONE
     Indication: INTRACRANIAL PRESSURE INCREASED
     Dosage: 0.25 MG, DAILY
     Route: 065
  2. ETOPOSIDE. [Suspect]
     Active Substance: ETOPOSIDE
     Indication: PRODUCT USED FOR UNKNOWN INDICATION
     Dosage: 100 MG/M2, UNK
     Route: 065
  3. SODIUM CHLORIDE. [Suspect]
     Active Substance: SODIUM CHLORIDE
     Indication: HYPONATRAEMIA
     Dosage: 6 G, UNK
     Route: 048
  4. CARBOPLATIN. [Suspect]
     Active Substance: CARBOPLATIN
     Indication: PRODUCT USED FOR UNKNOWN INDICATION
     Dosage: AUC=5
     Route: 065
  5. BETAMETHASONE. [Suspect]
     Active Substance: BETAMETHASONE
     Indication: METASTASES TO CENTRAL NERVOUS SYSTEM
  6. FUROSEMIDE. [Suspect]
     Active Substance: FUROSEMIDE
     Indication: HYPONATRAEMIA
     Dosage: UNK
     Route: 065
  7. MOZAVAPTAN [Concomitant]
     Indication: HYPONATRAEMIA
     Dosage: 30 MG, DAILY
     Route: 065

REACTIONS (4)
  - Lymphadenopathy [Unknown]
  - Disease progression [Unknown]
  - Drug effect incomplete [Unknown]
  - Hyponatraemia [Recovered/Resolved]
